FAERS Safety Report 4450507-6 (Version None)
Quarter: 2004Q3

REPORT INFORMATION
  Report Type: 
  Country: None (occurrence: None)
  Receive Date: 20040914
  Receipt Date: 20040902
  Transmission Date: 20050211
  Serious: No
  Sender: FDA-Public Use
  Company Number: 2004AC00279

PATIENT
  Age: 40 Year
  Sex: Female

DRUGS (4)
  1. PROPOFOL [Suspect]
     Indication: GENERAL ANAESTHESIA
     Dosage: 2 MG/KG DAILY IV
     Route: 042
  2. FENTANYL [Suspect]
     Indication: GENERAL ANAESTHESIA
     Dosage: 1 UG/KG DAILY IV
     Route: 042
  3. ROCURONIUM [Suspect]
     Dosage: 0.6 MG/KG DAILY
  4. MIDAZOLAM HCL [Concomitant]

REACTIONS (3)
  - ARTHROPATHY [None]
  - ENDOTRACHEAL INTUBATION COMPLICATION [None]
  - JOINT DISLOCATION [None]
